FAERS Safety Report 4355517-5 (Version None)
Quarter: 2004Q2

REPORT INFORMATION
  Report Type: 
  Country: None (occurrence: None)
  Receive Date: 20040503
  Receipt Date: 20030721
  Transmission Date: 20050107
  Serious: Yes (Hospitalization)
  Sender: FDA-Public Use
  Company Number: PHEH2003US05578

PATIENT
  Age: 44 Year
  Sex: Male
  Weight: 90.7 kg

DRUGS (1)
  1. LOTREL [Suspect]
     Dosage: 1 CAPSULE/QD
     Dates: start: 20030514, end: 20030618

REACTIONS (1)
  - ANGIONEUROTIC OEDEMA [None]
